FAERS Safety Report 19717545 (Version 1)
Quarter: 2021Q3

REPORT INFORMATION
  Report Type: Spontaneous
  Country: US (occurrence: US)
  Receive Date: 20210818
  Receipt Date: 20210818
  Transmission Date: 20211014
  Serious: No
  Sender: FDA-Public Use
  Company Number: US-ASTRAZENECA-2021A646681

PATIENT
  Sex: Female
  Weight: 56.7 kg

DRUGS (1)
  1. FASLODEX [Suspect]
     Active Substance: FULVESTRANT
     Indication: BREAST CANCER METASTATIC
     Route: 030
     Dates: end: 2021

REACTIONS (5)
  - Feeling abnormal [Unknown]
  - Muscle contractions involuntary [Not Recovered/Not Resolved]
  - Muscle disorder [Not Recovered/Not Resolved]
  - Arthralgia [Recovering/Resolving]
  - Injection site pain [Not Recovered/Not Resolved]
